FAERS Safety Report 23275892 (Version 1)
Quarter: 2023Q4

REPORT INFORMATION
  Report Type: Spontaneous
  Country: PT (occurrence: PT)
  Receive Date: 20231208
  Receipt Date: 20231208
  Transmission Date: 20240109
  Serious: Yes (Other)
  Sender: FDA-Public Use
  Company Number: PT-ADVANZ PHARMA-202311011053

PATIENT

DRUGS (4)
  1. ZONISAMIDE [Suspect]
     Active Substance: ZONISAMIDE
     Dosage: UNK (ZONEGRAN) (PILL)
     Dates: start: 20231127
  2. SPIRONOLACTONE [Concomitant]
     Active Substance: SPIRONOLACTONE
     Dosage: UNK UNK, QD (1 PER DAY)
  3. PAROXETINE [Concomitant]
     Active Substance: PAROXETINE
     Dosage: 1 PER DAY
  4. MINOXIDIL [Concomitant]
     Active Substance: MINOXIDIL
     Dosage: 3 DOSAGE FORM, WEEKLY (3 PER WEEK)

REACTIONS (4)
  - Myopia [Not Recovered/Not Resolved]
  - Asthenopia [Not Recovered/Not Resolved]
  - Vision blurred [Not Recovered/Not Resolved]
  - Visual impairment [Not Recovered/Not Resolved]

NARRATIVE: CASE EVENT DATE: 20231127
